FAERS Safety Report 4335244-0 (Version None)
Quarter: 2004Q2

REPORT INFORMATION
  Report Type: 
  Country: None (occurrence: None)
  Receive Date: 20040408
  Receipt Date: 20040210
  Transmission Date: 20050107
  Serious: Yes (Hospitalization)
  Sender: FDA-Public Use
  Company Number: DE-MERCK-0402DEU00072

PATIENT
  Age: 78 Year
  Sex: Female
  Weight: 48 kg

DRUGS (3)
  1. FOSAMAX [Suspect]
     Indication: OSTEOPOROSIS
     Route: 048
     Dates: start: 20020901, end: 20031101
  2. CALCIUM CARBONATE AND CHOLECALCIFEROL [Concomitant]
     Route: 065
     Dates: start: 20020901
  3. MAGNESIUM (UNSPECIFIED) [Concomitant]
     Indication: NIGHT CRAMPS
     Route: 065
     Dates: start: 20010101

REACTIONS (3)
  - ANAEMIA [None]
  - LEUKOPENIA [None]
  - RADIUS FRACTURE [None]
